FAERS Safety Report 10396966 (Version 4)
Quarter: 2014Q4

REPORT INFORMATION
  Report Type: Report from Study
  Country: US (occurrence: US)
  Receive Date: 20140820
  Receipt Date: 20141001
  Transmission Date: 20150528
  Serious: Yes (Death, Hospitalization, Other)
  Sender: FDA-Public Use
  Company Number: US-BAYER-2014-101193

PATIENT
  Age: 71 Year
  Sex: Male

DRUGS (1)
  1. STIVARGA [Suspect]
     Active Substance: REGORAFENIB
     Indication: COLON CANCER
     Dosage: 160 MG, QD (4 X 40 MG)
     Route: 048

REACTIONS (17)
  - Death [Fatal]
  - Dyspnoea [None]
  - Decreased appetite [None]
  - Abnormal loss of weight [None]
  - Decreased appetite [None]
  - Blood pressure diastolic increased [None]
  - Blood potassium increased [None]
  - Dysphonia [None]
  - Confusional state [None]
  - Muscular weakness [None]
  - Delirium [None]
  - Fatigue [None]
  - Asthenia [None]
  - Paranasal sinus hypersecretion [None]
  - Pain in extremity [None]
  - Epistaxis [None]
  - Weight decreased [None]

NARRATIVE: CASE EVENT DATE: 20140708
